FAERS Safety Report 17459649 (Version 1)
Quarter: 2020Q1

REPORT INFORMATION
  Report Type: Spontaneous
  Country: US (occurrence: US)
  Receive Date: 20200225
  Receipt Date: 20200225
  Transmission Date: 20200409
  Serious: No
  Sender: FDA-Public Use
  Company Number: US-ROCHE-2296621

PATIENT
  Sex: Male
  Weight: 12.53 kg

DRUGS (5)
  1. AMLODIPINE [Concomitant]
     Active Substance: AMLODIPINE BESYLATE
     Dosage: ONGOING:UNKNOWN
     Route: 048
     Dates: start: 20171215
  2. NUTROPIN [Suspect]
     Active Substance: SOMATROPIN
     Indication: CHRONIC KIDNEY DISEASE
     Dosage: STRENGTH: 10 MG/2ML
     Route: 058
  3. SODIUM CITRATE. [Concomitant]
     Active Substance: SODIUM CITRATE
     Dosage: ONGOING:UNKNOWN
     Route: 042
     Dates: start: 20171215
  4. CALCITRIOL. [Concomitant]
     Active Substance: CALCITRIOL
     Dosage: ONGOING:UNKNOWN
     Route: 048
     Dates: start: 20171215
  5. RANITIDINE HCL [Concomitant]
     Active Substance: RANITIDINE HYDROCHLORIDE
     Dosage: ONGOING:UNKNOWN
     Route: 048
     Dates: start: 20171215

REACTIONS (2)
  - Product dose omission [Unknown]
  - No adverse event [Unknown]
